FAERS Safety Report 4950716-3 (Version None)
Quarter: 2006Q1

REPORT INFORMATION
  Report Type: 
  Country: None (occurrence: None)
  Receive Date: 20060322
  Receipt Date: 20050202
  Transmission Date: 20060701
  Serious: Yes (Hospitalization)
  Sender: FDA-Public Use
  Company Number: DE-MERCK-0502DEU00031

PATIENT
  Age: 63 Year
  Sex: Female
  Weight: 71 kg

DRUGS (9)
  1. VIOXX [Suspect]
     Indication: SPINAL OSTEOARTHRITIS
     Route: 048
     Dates: end: 20040101
  2. VIOXX [Suspect]
     Route: 048
     Dates: start: 20000822, end: 20030916
  3. VIOXX [Suspect]
     Route: 048
     Dates: end: 20040101
  4. VIOXX [Suspect]
     Route: 048
     Dates: start: 20000822, end: 20030916
  5. ATORVASTATIN CALCIUM [Concomitant]
     Route: 048
  6. ESTRADIOL VALERATE AND NORETHINDRONE [Concomitant]
     Route: 048
  7. DICLOFENAC [Concomitant]
     Route: 048
     Dates: start: 20030124
  8. DICLOFENAC [Concomitant]
     Route: 048
     Dates: start: 20030210
  9. ASPIRIN [Concomitant]
     Route: 048
     Dates: start: 20030616

REACTIONS (10)
  - ANGINA UNSTABLE [None]
  - AUTOIMMUNE THYROIDITIS [None]
  - CORONARY ARTERY DISEASE [None]
  - CORONARY ARTERY STENOSIS [None]
  - DYSPNOEA EXERTIONAL [None]
  - ESSENTIAL HYPERTENSION [None]
  - HYPERTENSION [None]
  - MYOCARDIAL INFARCTION [None]
  - PERIPHERAL ARTERIAL OCCLUSIVE DISEASE [None]
  - PHLEBITIS SUPERFICIAL [None]
